FAERS Safety Report 16440184 (Version 1)
Quarter: 2019Q2

REPORT INFORMATION
  Report Type: Spontaneous
  Country: EG (occurrence: EG)
  Receive Date: 20190617
  Receipt Date: 20190617
  Transmission Date: 20190711
  Serious: Yes (Hospitalization)
  Sender: FDA-Public Use
  Company Number: EG-PFIZER INC-2019252079

PATIENT
  Age: 45 Year
  Sex: Male
  Weight: 70 kg

DRUGS (4)
  1. SOLU-MEDROL [Suspect]
     Active Substance: METHYLPREDNISOLONE SODIUM SUCCINATE
     Indication: HODGKIN^S DISEASE
     Dosage: 800 MG, UNK
     Route: 042
     Dates: start: 20180502, end: 20180505
  2. CYTOPLATIN [Suspect]
     Active Substance: CISPLATIN
     Dosage: 40 MG, UNK
  3. ETOPUL [Suspect]
     Active Substance: ETOPOSIDE
     Indication: HODGKIN^S DISEASE
     Dosage: 100 MG, UNK
  4. TABINE [Concomitant]
     Indication: HODGKIN^S DISEASE
     Dosage: 3000 MG, UNK
     Route: 042
     Dates: start: 20180506

REACTIONS (1)
  - Diarrhoea [Unknown]

NARRATIVE: CASE EVENT DATE: 20180503
